FAERS Safety Report 4748552-6 (Version None)
Quarter: 2005Q3

REPORT INFORMATION
  Report Type: 
  Country: None (occurrence: None)
  Receive Date: 20050818
  Receipt Date: 20050818
  Transmission Date: 20060218
  Serious: Yes (Hospitalization)
  Sender: FDA-Public Use
  Company Number: None

PATIENT
  Age: 86 Year
  Sex: Female

DRUGS (7)
  1. LOTREL [Suspect]
     Dosage: 1 DAILY
  2. VICODIN [Concomitant]
  3. LOPRESSOR [Concomitant]
  4. PREVACID [Concomitant]
  5. LASIX [Concomitant]
  6. PREMARIN [Concomitant]
  7. SYNTHROID [Concomitant]

REACTIONS (1)
  - DRUG HYPERSENSITIVITY [None]
